FAERS Safety Report 8020058-0 (Version None)
Quarter: 2011Q4

REPORT INFORMATION
  Report Type: 
  Country: None (occurrence: None)
  Receive Date: 20111227
  Receipt Date: 20111213
  Transmission Date: 20120403
  Serious: Yes (Hospitalization, Other)
  Sender: FDA-Public Use
  Company Number: GPV/SAF/11/0021896

PATIENT
  Age: 37 Year
  Sex: Female
  Weight: 84 kg

DRUGS (4)
  1. VALPROATE SODIUM [Suspect]
     Indication: BIPOLAR DISORDER
     Dosage: 500 MG, 1 IN 12 HR, ORAL
     Route: 048
     Dates: start: 20091130, end: 20111101
  2. VALPROATE SODIUM [Suspect]
     Indication: AFFECTIVE DISORDER
     Dosage: 500 MG, 1 IN 12 HR, ORAL
     Route: 048
     Dates: start: 20091130, end: 20111101
  3. OLANZAPINE [Suspect]
     Indication: BIPOLAR DISORDER
     Dosage: 10 MG, 1 IN 12 HR, ORAL
     Route: 048
     Dates: start: 20110802
  4. OLANZAPINE [Suspect]
     Indication: AFFECTIVE DISORDER
     Dosage: 10 MG, 1 IN 12 HR, ORAL
     Route: 048
     Dates: start: 20110802

REACTIONS (3)
  - HAEMOGLOBIN DECREASED [None]
  - MATERNAL EXPOSURE DURING PREGNANCY [None]
  - THROMBOCYTOPENIA [None]
